FAERS Safety Report 9660953 (Version 2)
Quarter: 2013Q4

REPORT INFORMATION
  Report Type: Spontaneous
  Country: AU (occurrence: AU)
  Receive Date: 20131031
  Receipt Date: 20131115
  Transmission Date: 20140711
  Serious: Yes (Other)
  Sender: FDA-Public Use
  Company Number: AU-PFIZER INC-2013310361

PATIENT
  Age: 9 Decade
  Sex: Female
  Weight: 66 kg

DRUGS (7)
  1. LYRICA [Suspect]
     Indication: HERPES ZOSTER
     Dosage: 25 MG, 2X/DAY
     Route: 048
     Dates: start: 20130809, end: 20130812
  2. LYRICA [Suspect]
     Indication: NEURALGIA
  3. PANADOL [Concomitant]
     Dosage: UNK
     Route: 048
  4. ATACAND [Concomitant]
     Indication: HYPERTENSION
     Dosage: 16 MG, DAILY
     Route: 048
  5. CARTIA [Concomitant]
     Dosage: UNK
     Route: 048
  6. NEXIUM [Concomitant]
     Dosage: 20 MG, DAILY
     Route: 048
  7. VASOCARDOL [Concomitant]
     Dosage: 180 MG, DAILY
     Route: 048

REACTIONS (10)
  - Off label use [Unknown]
  - Hallucination, visual [Recovered/Resolved]
  - Activities of daily living impaired [Recovered/Resolved]
  - Disorientation [Recovered/Resolved]
  - Insomnia [Recovered/Resolved]
  - Anger [Recovered/Resolved]
  - Panic attack [Recovered/Resolved]
  - Amnesia [Recovered/Resolved]
  - Tremor [Recovered/Resolved]
  - Balance disorder [Recovered/Resolved]
